FAERS Safety Report 4687872-0 (Version None)
Quarter: 2005Q2

REPORT INFORMATION
  Report Type: 
  Country: None (occurrence: None)
  Receive Date: 20050608
  Receipt Date: 20050608
  Transmission Date: 20051028
  Serious: Yes (Other)
  Sender: FDA-Public Use
  Company Number: None

PATIENT
  Sex: Male
  Weight: 59 kg

DRUGS (2)
  1. CISPLATIN [Suspect]
     Indication: NEOPLASM MALIGNANT
     Dosage: 199 MG/M2 ON DAYS 1, 22, AND 43
     Dates: start: 20050502
  2. RADIATION [Suspect]
     Indication: NEOPLASM MALIGNANT
     Dosage: 70 GY/35 FX FOR 7 WKS
     Dates: start: 20050502

REACTIONS (4)
  - ACUTE PRERENAL FAILURE [None]
  - DEHYDRATION [None]
  - DEPRESSION [None]
  - LOBAR PNEUMONIA [None]
